FAERS Safety Report 4595393-9 (Version None)
Quarter: 2005Q1

REPORT INFORMATION
  Report Type: 
  Country: None (occurrence: None)
  Receive Date: 20050224
  Receipt Date: 20050204
  Transmission Date: 20050727
  Serious: Yes (Hospitalization, Other)
  Sender: FDA-Public Use
  Company Number: USA050187980

PATIENT
  Age: 61 Year
  Sex: Male

DRUGS (6)
  1. CIALIS [Suspect]
     Indication: ERECTILE DYSFUNCTION
  2. GLUCOPHAGE [Concomitant]
  3. LITHIUM [Concomitant]
  4. GLIPIZIDE [Concomitant]
  5. LOMOTIL [Concomitant]
  6. ATROPINE W/DIPHENOXYLATE [Concomitant]

REACTIONS (25)
  - ABDOMINAL PAIN [None]
  - ANOREXIA [None]
  - ARTHRALGIA [None]
  - ASTHENIA [None]
  - ATRIOVENTRICULAR BLOCK FIRST DEGREE [None]
  - BEDRIDDEN [None]
  - BLOOD GLUCOSE INCREASED [None]
  - BLOOD MAGNESIUM INCREASED [None]
  - DIFFICULTY IN WALKING [None]
  - DYSSTASIA [None]
  - ELECTROCARDIOGRAM ST-T SEGMENT ABNORMAL [None]
  - FEELING ABNORMAL [None]
  - HYPOKALAEMIA [None]
  - LEUKOCYTOSIS [None]
  - LIPASE INCREASED [None]
  - MOTION SICKNESS [None]
  - NAUSEA [None]
  - NEUTROPHIL COUNT INCREASED [None]
  - RENAL CYST [None]
  - SPINAL DISORDER [None]
  - STOMACH DISCOMFORT [None]
  - URINARY TRACT INFECTION BACTERIAL [None]
  - URINE KETONE BODY PRESENT [None]
  - URINE LEUKOCYTE ESTERASE POSITIVE [None]
  - VOMITING [None]
